FAERS Safety Report 21311000 (Version 1)
Quarter: 2022Q3

REPORT INFORMATION
  Report Type: Spontaneous
  Country: US (occurrence: None)
  Receive Date: 20220909
  Receipt Date: 20220909
  Transmission Date: 20221027
  Serious: No
  Sender: FDA-Public Use
  Company Number: US-ARIS GLOBAL-202112-2328

PATIENT
  Sex: Female

DRUGS (13)
  1. OXERVATE [Suspect]
     Active Substance: CENEGERMIN-BKBJ
     Indication: Neurotrophic keratopathy
     Route: 047
     Dates: start: 20211208
  2. HYDRALAZINE HCL [Concomitant]
     Active Substance: HYDRALAZINE HYDROCHLORIDE
  3. BENADRYL ALLERGY [Concomitant]
     Active Substance: DIPHENHYDRAMINE HYDROCHLORIDE
  4. VALIUM [Concomitant]
     Active Substance: DIAZEPAM
  5. ATENOLOL [Concomitant]
     Active Substance: ATENOLOL
  6. SIMVASTATIN [Concomitant]
     Active Substance: SIMVASTATIN
  7. MULTIVITAMIN-IRON-FLUORIDE [Concomitant]
  8. PROBIOTIC + ACIDOPHILUS [Concomitant]
  9. HYDROCHLOROTHIAZIDE [Concomitant]
     Active Substance: HYDROCHLOROTHIAZIDE
  10. BENICAR [Concomitant]
     Active Substance: OLMESARTAN MEDOXOMIL
  11. ARTIFICIAL TEARS [Concomitant]
     Active Substance: GLYCERIN\HYPROMELLOSES\POLYETHYLENE GLYCOL 400
  12. OFLOXACIN [Concomitant]
     Active Substance: OFLOXACIN
  13. PROLENSA [Concomitant]
     Active Substance: BROMFENAC SODIUM

REACTIONS (5)
  - Blood pressure increased [Unknown]
  - Eye pain [Unknown]
  - Ocular hyperaemia [Unknown]
  - Eye discharge [Unknown]
  - Photophobia [Unknown]
